FAERS Safety Report 5174250-3 (Version None)
Quarter: 2006Q4

REPORT INFORMATION
  Report Type: 
  Country: None (occurrence: None)
  Receive Date: 20061206
  Receipt Date: 20061201
  Transmission Date: 20070319
  Serious: Yes (Death)
  Sender: FDA-Public Use
  Company Number: CLOF-10401

PATIENT
  Sex: Female

DRUGS (3)
  1. CLOFARABINE [Suspect]
     Indication: LEUKAEMIA
     Dates: start: 20061102, end: 20061106
  2. CLOFARABINE [Suspect]
     Indication: LEUKAEMIA
  3. HIDAC [Suspect]
     Indication: LEUKAEMIA

REACTIONS (2)
  - CONFUSIONAL STATE [None]
  - NEUROTOXICITY [None]
